FAERS Safety Report 10220756 (Version 1)
Quarter: 2014Q2

REPORT INFORMATION
  Report Type: Spontaneous
  Country: US (occurrence: US)
  Receive Date: 20140606
  Receipt Date: 20140606
  Transmission Date: 20141212
  Serious: No
  Sender: FDA-Public Use
  Company Number: US-PFIZER INC-2014153993

PATIENT
  Age: 70 Year
  Sex: Female

DRUGS (1)
  1. PROPANOLOL HCL [Suspect]
     Indication: BLOOD PRESSURE
     Dosage: 60 MG, UNK
     Route: 048
     Dates: start: 201312

REACTIONS (1)
  - Palpitations [Recovered/Resolved]
